FAERS Safety Report 20214296 (Version 1)
Quarter: 2021Q4

REPORT INFORMATION
  Report Type: Report from Study
  Country: FR (occurrence: FR)
  Receive Date: 20211221
  Receipt Date: 20211221
  Transmission Date: 20220303
  Serious: Yes (Life-Threatening)
  Sender: FDA-Public Use
  Company Number: FR-SERVIER-S21014071

PATIENT

DRUGS (13)
  1. PEGASPARGASE [Suspect]
     Active Substance: PEGASPARGASE
     Indication: Acute lymphocytic leukaemia
     Dosage: 5000 IU, ON D12 AND D26
     Route: 042
     Dates: start: 20200817
  2. PEGASPARGASE [Suspect]
     Active Substance: PEGASPARGASE
     Dosage: 5000 IU, ON D12 AND D26
     Route: 042
     Dates: start: 20200901
  3. TN UNSPECIFIED [Concomitant]
     Indication: Acute lymphocytic leukaemia
     Dosage: 78 MG, ON D 8, 15, 22 AND 29
     Route: 042
     Dates: start: 20200813
  4. TN UNSPECIFIED [Concomitant]
     Dosage: 78 MG, ON D 8, 15, 22 AND 29
     Route: 042
     Dates: start: 20200820
  5. TN UNSPECIFIED [Concomitant]
     Dosage: 78 MG, ON D 8, 15, 22 AND 29
     Route: 042
     Dates: start: 20200827
  6. TN UNSPECIFIED [Concomitant]
     Dosage: 78 MG, ON D 8, 15, 22 AND 29
     Route: 042
     Dates: start: 20200903
  7. TN UNSPECIFIED [Concomitant]
     Indication: Acute lymphocytic leukaemia
     Dosage: 2 MG, ON D 8, 15, 22 AND 29
     Route: 042
     Dates: start: 20200813
  8. TN UNSPECIFIED [Concomitant]
     Dosage: 2 MG, ON D 8, 15, 22 AND 29
     Route: 042
     Dates: start: 20200820
  9. TN UNSPECIFIED [Concomitant]
     Dosage: 2 MG, ON D 8, 15, 22 AND 29
     Route: 042
     Dates: start: 20200827
  10. TN UNSPECIFIED [Concomitant]
     Dosage: 2 MG, ON D 8, 15, 22 AND 29
     Route: 042
     Dates: start: 20200903
  11. TN UNSPECIFIED [Concomitant]
     Indication: Acute lymphocytic leukaemia
     Dosage: 1960 MG
     Route: 042
     Dates: start: 20200814
  12. TN UNSPECIFIED [Concomitant]
     Indication: Acute lymphocytic leukaemia
     Dosage: 15 MG, ON D13 AND 24
     Route: 037
     Dates: start: 20200818
  13. TN UNSPECIFIED [Concomitant]
     Dosage: 15 MG, ON D13 AND 24
     Route: 037
     Dates: start: 20200831

REACTIONS (2)
  - Gastrointestinal haemorrhage [Recovered/Resolved]
  - Analgesic therapy [Recovered/Resolved]

NARRATIVE: CASE EVENT DATE: 20200909
